FAERS Safety Report 6303840-7 (Version None)
Quarter: 2009Q3

REPORT INFORMATION
  Report Type: 
  Country: None (occurrence: None)
  Receive Date: 20090805
  Receipt Date: 20090721
  Transmission Date: 20100115
  Serious: Yes (Hospitalization)
  Sender: FDA-Public Use
  Company Number: 8049282

PATIENT

DRUGS (1)
  1. KEPPRA [Suspect]
     Dosage: 1000 MG 2/D PO
     Route: 048

REACTIONS (1)
  - CONVULSION [None]
